FAERS Safety Report 16702959 (Version 1)
Quarter: 2019Q3

REPORT INFORMATION
  Report Type: Report from Study
  Country: US (occurrence: US)
  Receive Date: 20190814
  Receipt Date: 20190814
  Transmission Date: 20191004
  Serious: Yes (Other)
  Sender: FDA-Public Use
  Company Number: US-JNJFOC-20190808811

PATIENT

DRUGS (1)
  1. REMICADE [Suspect]
     Active Substance: INFLIXIMAB
     Indication: PRODUCT USED FOR UNKNOWN INDICATION
     Route: 042

REACTIONS (21)
  - Cellulitis [Unknown]
  - Bronchitis [Unknown]
  - Urinary tract infection [Unknown]
  - Pneumonia [Unknown]
  - Anal abscess [Unknown]
  - Upper respiratory tract infection [Unknown]
  - Tuberculosis [Unknown]
  - Gastroenteritis [Unknown]
  - Pulmonary tuberculosis [Unknown]
  - Pneumocystis jirovecii pneumonia [Unknown]
  - Sinusitis [Unknown]
  - Sepsis [Unknown]
  - Disseminated tuberculosis [Unknown]
  - Abscess [Unknown]
  - Lower respiratory tract infection [Unknown]
  - Nasopharyngitis [Unknown]
  - Bacterial infection [Unknown]
  - Ear infection [Unknown]
  - Tonsillitis [Unknown]
  - Abdominal abscess [Unknown]
  - Herpes zoster [Unknown]
